FAERS Safety Report 21594995 (Version 1)
Quarter: 2022Q4

REPORT INFORMATION
  Report Type: Spontaneous
  Country: CN (occurrence: CN)
  Receive Date: 20221115
  Receipt Date: 20221115
  Transmission Date: 20230112
  Serious: Yes (Other)
  Sender: FDA-Public Use
  Company Number: CN-SUN PHARMACEUTICAL INDUSTRIES LTD-2022R1-363396

PATIENT
  Age: 72 Year
  Sex: Male

DRUGS (2)
  1. DOCETAXEL [Suspect]
     Active Substance: DOCETAXEL
     Indication: Gastric cancer
     Dosage: UNK (75MG/M2)
     Route: 065
     Dates: start: 201806
  2. CISPLATIN [Concomitant]
     Active Substance: CISPLATIN
     Indication: Gastric cancer
     Dosage: UNK (75MG/M2)
     Route: 065
     Dates: start: 201806

REACTIONS (1)
  - Disease progression [Unknown]

NARRATIVE: CASE EVENT DATE: 20181101
